FAERS Safety Report 10214946 (Version 1)
Quarter: 2014Q1

REPORT INFORMATION
  Report Type: Spontaneous
  Country: US (occurrence: None)
  Receive Date: 20140306
  Receipt Date: 20140306
  Transmission Date: 20141002
  Serious: Yes (Other)
  Sender: FDA-Public Use
  Company Number: 163-21880-13010439

PATIENT
  Age: 65 Year
  Sex: Male
  Weight: 102.5 kg

DRUGS (5)
  1. REVLIMID [Suspect]
     Indication: PLASMA CELL MYELOMA
     Dosage: 25 MG, 21 IN 21 D, PO
     Route: 048
     Dates: start: 20121205
  2. DEXAMETHASONE (DEXAMETHASONE) (TABLETS) [Concomitant]
  3. LISINOPRIL (LISINOPRIL) (TABLETS) [Concomitant]
  4. PRILOSEC (OMEPRAZOLE) (CAPSULES) [Concomitant]
  5. ASPIRINE (ACETYLSALICYLIC ACID) (CHEWABLE TABLET) [Concomitant]

REACTIONS (15)
  - Renal injury [None]
  - Weight increased [None]
  - Nervousness [None]
  - Gait disturbance [None]
  - Blood count abnormal [None]
  - Tremor [None]
  - Constipation [None]
  - Dyspnoea [None]
  - Local swelling [None]
  - Dry skin [None]
  - Rash generalised [None]
  - Asthenia [None]
  - Fatigue [None]
  - Dry skin [None]
  - Pruritus [None]
